FAERS Safety Report 4612476-5 (Version None)
Quarter: 2005Q1

REPORT INFORMATION
  Report Type: 
  Country: None (occurrence: None)
  Receive Date: 20050316
  Receipt Date: 20050316
  Transmission Date: 20050727
  Serious: No
  Sender: FDA-Public Use
  Company Number: None

PATIENT
  Age: 46 Year
  Sex: Female
  Weight: 63.5036 kg

DRUGS (1)
  1. PREDNISONE [Suspect]
     Indication: URTICARIA
     Dosage: SEE IMAGE
     Route: 048
     Dates: start: 20050304, end: 20050308

REACTIONS (1)
  - MEDICATION ERROR [None]
